FAERS Safety Report 21025118 (Version 2)
Quarter: 2022Q4

REPORT INFORMATION
  Report Type: Spontaneous
  Country: CH (occurrence: CH)
  Receive Date: 20220630
  Receipt Date: 20221209
  Transmission Date: 20230113
  Serious: Yes (Other)
  Sender: FDA-Public Use
  Company Number: CH-JNJFOC-20220655037

PATIENT
  Sex: Male

DRUGS (1)
  1. REMICADE [Suspect]
     Active Substance: INFLIXIMAB
     Indication: SAPHO syndrome
     Route: 041

REACTIONS (7)
  - Pachymeningitis [Unknown]
  - VIth nerve paralysis [Unknown]
  - Drug ineffective for unapproved indication [Unknown]
  - Arthritis [Unknown]
  - Drug specific antibody present [Unknown]
  - Drug specific antibody [Unknown]
  - Off label use [Unknown]
